FAERS Safety Report 26194972 (Version 1)
Quarter: 2025Q4

REPORT INFORMATION
  Report Type: Spontaneous
  Country: US (occurrence: US)
  Receive Date: 20251224
  Receipt Date: 20251224
  Transmission Date: 20260117
  Serious: No
  Sender: Kenvue
  Company Number: US-KENVUE-20251109163

PATIENT
  Age: 92 Year
  Sex: Female

DRUGS (1)
  1. IMODIUM MULTI-SYMPTOM RELIEF [Suspect]
     Active Substance: DIMETHICONE\LOPERAMIDE HYDROCHLORIDE
     Indication: Diarrhoea
     Dosage: 1 DOSAGE FORM, SINGLE (1 CAPLET, ONCE) EARLIER, BEFORE I CALLED, I HAD A BIGGER DIARRHEA. THE PHARMACIST SAID TO TAKE 2 AT FIRST, BUT SINCE ONLY I HAD A SMALL ONE THIS MORNING, ONLY TOOK 1
     Route: 065
     Dates: start: 20251124

REACTIONS (2)
  - Diarrhoea [Not Recovered/Not Resolved]
  - Incorrect dose administered [Unknown]

NARRATIVE: CASE EVENT DATE: 20251124
